FAERS Safety Report 6655282-2 (Version None)
Quarter: 2010Q1

REPORT INFORMATION
  Report Type: 
  Country: None (occurrence: None)
  Receive Date: 20100329
  Receipt Date: 20100325
  Transmission Date: 20100710
  Serious: Yes (Life-Threatening)
  Sender: FDA-Public Use
  Company Number: GB-BRISTOL-MYERS SQUIBB COMPANY-15035710

PATIENT
  Age: 87 Year
  Sex: Female

DRUGS (1)
  1. HYDROXYCARBAMIDE [Suspect]
     Indication: MYELOPROLIFERATIVE DISORDER
     Route: 048
     Dates: start: 20060829, end: 20100311

REACTIONS (1)
  - URETHRAL CANCER [None]
